FAERS Safety Report 9265649 (Version 1)
Quarter: 2013Q2

REPORT INFORMATION
  Report Type: Spontaneous
  Country: BR (occurrence: BR)
  Receive Date: 20130501
  Receipt Date: 20130501
  Transmission Date: 20140414
  Serious: Yes (Other)
  Sender: FDA-Public Use
  Company Number: BR-ABBOTT-13P-020-1081093-00

PATIENT
  Age: 34 Year
  Sex: Female
  Weight: 105 kg

DRUGS (3)
  1. HUMIRA [Suspect]
     Indication: PSORIASIS
     Dosage: WEEK ZERO
     Route: 058
     Dates: start: 20130408
  2. HUMIRA [Suspect]
     Dosage: WEEK ONE
     Route: 058
  3. HUMIRA [Suspect]
     Route: 058

REACTIONS (7)
  - Hallucination [Recovered/Resolved]
  - Pyrexia [Recovered/Resolved]
  - Feeling cold [Recovered/Resolved]
  - Tachycardia [Recovered/Resolved]
  - Tachycardia [Recovered/Resolved]
  - Injection site swelling [Recovered/Resolved]
  - Injection site warmth [Recovered/Resolved]
